FAERS Safety Report 6300313-2 (Version None)
Quarter: 2009Q3

REPORT INFORMATION
  Report Type: 
  Country: None (occurrence: None)
  Receive Date: 20090803
  Receipt Date: 20090722
  Transmission Date: 20100115
  Serious: Yes (Life-Threatening)
  Sender: FDA-Public Use
  Company Number: GXKR2009GB08371

PATIENT
  Age: 83 Year
  Sex: Male
  Weight: 80 kg

DRUGS (5)
  1. BENDROFLUMETHIAZIDE (NGX) (BENDROFLUMETHIAZIDE) UNKNOWN [Suspect]
     Indication: HYPERTENSION
     Dosage: 2.5 MG, QD, ORAL
     Route: 048
     Dates: start: 20090702
  2. DOXAZOSIN MESYLATE [Suspect]
     Indication: HYPERTENSION
     Dosage: 4 MG, QD, ORAL
     Route: 048
     Dates: start: 20090702
  3. ASPIRIN [Suspect]
     Indication: HYPERTENSION
     Dosage: 75 MG, QD, ORAL
     Route: 048
     Dates: start: 20000702
  4. BISOPROLOL FUMARATE [Concomitant]
  5. FINASTERIDE [Concomitant]

REACTIONS (7)
  - CHEST PAIN [None]
  - CONTUSION [None]
  - DIZZINESS [None]
  - EPISTAXIS [None]
  - SNEEZING [None]
  - THROMBOCYTOPENIA [None]
  - TREMOR [None]
